FAERS Safety Report 10177826 (Version 1)
Quarter: 2014Q2

REPORT INFORMATION
  Report Type: Spontaneous
  Country: US (occurrence: US)
  Receive Date: 20140516
  Receipt Date: 20140516
  Transmission Date: 20141212
  Serious: No
  Sender: FDA-Public Use
  Company Number: US-SA-2013SA115393

PATIENT
  Age: 60 Year
  Sex: Female

DRUGS (3)
  1. APIDRA SOLOSTAR [Suspect]
     Indication: TYPE 2 DIABETES MELLITUS
     Dosage: TAKEN FROM: 5 YEARS AGO
     Route: 058
  2. LANTUS SOLOSTAR [Suspect]
     Indication: TYPE 2 DIABETES MELLITUS
     Dosage: TAKEN FROM: 5 YRS AGO DOSE:50 UNIT(S)
     Route: 051
  3. SOLOSTAR [Concomitant]

REACTIONS (1)
  - Neuropathy peripheral [Not Recovered/Not Resolved]
